FAERS Safety Report 10017612 (Version 1)
Quarter: 2014Q1

REPORT INFORMATION
  Report Type: Spontaneous
  Country: US (occurrence: US)
  Receive Date: 20140318
  Receipt Date: 20140318
  Transmission Date: 20141002
  Serious: No
  Sender: FDA-Public Use
  Company Number: US-BRISTOL-MYERS SQUIBB COMPANY-17398751

PATIENT
  Age: 58 Year
  Sex: 0

DRUGS (7)
  1. ERBITUX [Suspect]
     Indication: COLON CANCER METASTATIC
     Dates: start: 20130102
  2. BABY ASPIRIN [Concomitant]
  3. LISINOPRIL [Concomitant]
  4. HYDROCHLOROTHIAZIDE [Concomitant]
     Dosage: 12.5MG IN AM
  5. GLYBURIDE [Concomitant]
  6. METFORMIN HCL [Concomitant]
  7. HYDROCODONE [Concomitant]
     Indication: PAIN

REACTIONS (3)
  - Rash pruritic [Unknown]
  - Constipation [Unknown]
  - Dry skin [Unknown]
